FAERS Safety Report 20617571 (Version 1)
Quarter: 2022Q1

REPORT INFORMATION
  Report Type: Spontaneous
  Country: FR (occurrence: FR)
  Receive Date: 20220321
  Receipt Date: 20220321
  Transmission Date: 20220423
  Serious: Yes (Death)
  Sender: FDA-Public Use
  Company Number: FR-HQ SPECIALTY-FR-2022INT000059

PATIENT

DRUGS (2)
  1. CISPLATIN [Suspect]
     Active Substance: CISPLATIN
     Indication: Bile duct cancer
     Dosage: 25 MG/M2 (DAYS 1 AND 8, EVERY 21 DAYS)
     Route: 065
  2. GEMCITABINE [Suspect]
     Active Substance: GEMCITABINE
     Indication: Bile duct cancer
     Dosage: 1000 MG/M2 (DAYS 1 AND 8, EVERY 21 DAYS)
     Route: 065

REACTIONS (2)
  - Intestinal obstruction [Fatal]
  - Jaundice [Fatal]
